FAERS Safety Report 6816205-6 (Version None)
Quarter: 2010Q3

REPORT INFORMATION
  Report Type: 
  Country: None (occurrence: None)
  Receive Date: 20100705
  Receipt Date: 20100623
  Transmission Date: 20110219
  Serious: Yes (Other)
  Sender: FDA-Public Use
  Company Number: FR-BRISTOL-MYERS SQUIBB COMPANY-15165582

PATIENT
  Age: 48 Year
  Sex: Female

DRUGS (1)
  1. ORENCIA [Suspect]
     Dates: start: 20090512

REACTIONS (1)
  - LYMPHOPENIA [None]
